FAERS Safety Report 22608489 (Version 2)
Quarter: 2024Q1

REPORT INFORMATION
  Report Type: Other
  Country: US (occurrence: None)
  Receive Date: 20230616
  Receipt Date: 20240322
  Transmission Date: 20240409
  Serious: Yes (Hospitalization)
  Sender: FDA-Public Use
  Company Number: US-ROCHE-1987493

PATIENT
  Sex: Female

DRUGS (3)
  1. CELLCEPT [Suspect]
     Active Substance: MYCOPHENOLATE MOFETIL
     Indication: Lupus nephritis
     Dosage: 1000MG?500MG TAB: TAKE 2 TAB BY MOUTH 2(TWO) TIMES DAILY
     Route: 048
  2. CELLCEPT [Suspect]
     Active Substance: MYCOPHENOLATE MOFETIL
     Indication: Systemic lupus erythematosus
     Dosage: 500MG 2 TABLETS BID?TWO IN THE MORNING TWO AT NIGHT
     Route: 048
  3. CELLCEPT [Suspect]
     Active Substance: MYCOPHENOLATE MOFETIL
     Indication: Fibromyalgia
     Route: 048

REACTIONS (8)
  - Sepsis [Unknown]
  - Off label use [Unknown]
  - Product prescribing error [Unknown]
  - Visual impairment [Unknown]
  - Illness [Unknown]
  - Malaise [Unknown]
  - Circumstance or information capable of leading to medication error [Unknown]
  - Transcription medication error [Unknown]
